FAERS Safety Report 14984774 (Version 1)
Quarter: 2018Q2

REPORT INFORMATION
  Report Type: Spontaneous
  Country: US (occurrence: US)
  Receive Date: 20180607
  Receipt Date: 20180607
  Transmission Date: 20180711
  Serious: No
  Sender: FDA-Public Use
  Company Number: US-FOUNDATIONCONSUMERHC-2018-US-005288

PATIENT
  Age: 26 Year
  Sex: Female
  Weight: 92.08 kg

DRUGS (5)
  1. BUSPAR [Concomitant]
     Active Substance: BUSPIRONE HYDROCHLORIDE
  2. UNSPECIFIED VITAMINS [Concomitant]
     Active Substance: VITAMINS
  3. UNSPECIFIED HYLAND SUPPLEMENT [Concomitant]
  4. PLAN B ONE-STEP [Suspect]
     Active Substance: LEVONORGESTREL
     Indication: POST COITAL CONTRACEPTION
     Dosage: 1 DOSE X 1
     Route: 048
     Dates: start: 20180329, end: 20180329
  5. UNSPECIFIED INHALER [Concomitant]
     Active Substance: UNSPECIFIED INGREDIENT

REACTIONS (5)
  - Fatigue [Recovering/Resolving]
  - Anxiety [Recovering/Resolving]
  - Initial insomnia [Recovering/Resolving]
  - Dizziness [Recovering/Resolving]
  - Feeling hot [Recovering/Resolving]

NARRATIVE: CASE EVENT DATE: 20180329
